FAERS Safety Report 23819380 (Version 1)
Quarter: 2024Q2

REPORT INFORMATION
  Report Type: Spontaneous
  Country: US (occurrence: US)
  Receive Date: 20240506
  Receipt Date: 20240506
  Transmission Date: 20240716
  Serious: No
  Sender: FDA-Public Use
  Company Number: US-AUROBINDO-AUR-APL-2024-005723

PATIENT
  Age: 23 Year
  Sex: Female
  Weight: 52.6 kg

DRUGS (1)
  1. DEXTROMETHORPHAN HYDROBROMIDE\GUAIFENESIN [Suspect]
     Active Substance: DEXTROMETHORPHAN HYDROBROMIDE\GUAIFENESIN
     Indication: Cough
     Dosage: UNK
     Route: 048
     Dates: start: 20240130, end: 20240131

REACTIONS (6)
  - Anxiety [Not Recovered/Not Resolved]
  - Fatigue [Unknown]
  - Tremor [Unknown]
  - Illness [Unknown]
  - Panic attack [Unknown]
  - Dysstasia [Unknown]
